FAERS Safety Report 5838068-8 (Version None)
Quarter: 2008Q3

REPORT INFORMATION
  Report Type: 
  Country: None (occurrence: None)
  Receive Date: 20080808
  Receipt Date: 20080512
  Transmission Date: 20090109
  Serious: No
  Sender: FDA-Public Use
  Company Number: A0727483A

PATIENT
  Sex: Male

DRUGS (2)
  1. PAXIL [Suspect]
     Indication: DEPRESSION
     Dosage: 20MG PER DAY
     Route: 048
     Dates: start: 20080501, end: 20080507
  2. UNSPECIFIED MEDICATION [Concomitant]
     Indication: ANXIETY

REACTIONS (2)
  - CHILLS [None]
  - FATIGUE [None]
